FAERS Safety Report 5981293-6 (Version None)
Quarter: 2008Q4

REPORT INFORMATION
  Report Type: 
  Country: None (occurrence: None)
  Receive Date: 20081205
  Receipt Date: 20081125
  Transmission Date: 20090506
  Serious: Yes (Other)
  Sender: FDA-Public Use
  Company Number: AT-JNJFOC-20081106232

PATIENT
  Sex: Male
  Weight: 105 kg

DRUGS (1)
  1. REMICADE [Suspect]
     Indication: CHEILITIS GRANULOMATOSA
     Route: 042

REACTIONS (2)
  - BONE MARROW OEDEMA SYNDROME [None]
  - OSTEONECROSIS [None]
